FAERS Safety Report 5024656-8 (Version None)
Quarter: 2006Q2

REPORT INFORMATION
  Report Type: 
  Country: None (occurrence: None)
  Receive Date: 20060613
  Receipt Date: 20060424
  Transmission Date: 20061013
  Serious: Yes (Hospitalization)
  Sender: FDA-Public Use
  Company Number: US-ROCHE-445752

PATIENT
  Age: 39 Year
  Sex: Male

DRUGS (1)
  1. FUZEON [Suspect]
     Indication: DRUG USE FOR UNKNOWN INDICATION
     Dosage: ROUTE REPORTED AS INJECTABLE. FORM REPORTED AS SURGUARD2 SYRINGES.
     Route: 050
     Dates: start: 20030418

REACTIONS (5)
  - BLOOD POTASSIUM DECREASED [None]
  - CHRONIC OBSTRUCTIVE PULMONARY DISEASE [None]
  - INJECTION SITE BRUISING [None]
  - INJECTION SITE HAEMATOMA [None]
  - PNEUMONIA [None]
